FAERS Safety Report 6471340-X (Version None)
Quarter: 2009Q4

REPORT INFORMATION
  Report Type: 
  Country: None (occurrence: None)
  Receive Date: 20091203
  Receipt Date: 20080414
  Transmission Date: 20100525
  Serious: Yes (Hospitalization, Other)
  Sender: FDA-Public Use
  Company Number: GB-ELI_LILLY_AND_COMPANY-GB200802003054

PATIENT
  Sex: Male
  Weight: 74 kg

DRUGS (11)
  1. ALIMTA [Suspect]
     Indication: PLEURAL MESOTHELIOMA
     Dosage: 975 MG, UNKNOWN
     Route: 042
     Dates: start: 20080111
  2. ALIMTA [Suspect]
     Dosage: 975 MG, UNKNOWN
     Route: 042
     Dates: end: 20080209
  3. CISPLATIN [Concomitant]
     Indication: PLEURAL MESOTHELIOMA
     Dosage: UNK, UNKNOWN
     Route: 065
  4. VITAMIN B-12 [Concomitant]
     Indication: PROPHYLAXIS
  5. FOLIC ACID [Concomitant]
     Dosage: 450 UG, UNKNOWN
     Route: 048
  6. DEXAMETHASONE TAB [Concomitant]
     Indication: PROPHYLAXIS
     Dosage: 4 MG, UNKNOWN
     Route: 048
  7. OXYCONTIN [Concomitant]
     Indication: PAIN
     Dosage: 100 MG, 2/D
     Route: 048
  8. PARACETAMOL [Concomitant]
     Dosage: 1 G, 4/D
     Route: 048
  9. OMEPRAZOLE [Concomitant]
     Dosage: 20 MG, DAILY (1/D)
     Route: 048
  10. NULYTELY [Concomitant]
     Dosage: 1 D/F, UNKNOWN
     Route: 048
  11. LEVOPROMAZIN [Concomitant]
     Dosage: 125 MG, DAILY (1/D)
     Route: 065

REACTIONS (6)
  - CARDIAC DISORDER [None]
  - FEBRILE NEUTROPENIA [None]
  - HYPERHIDROSIS [None]
  - NAUSEA [None]
  - NEOPLASM PROGRESSION [None]
  - RENAL IMPAIRMENT [None]
